FAERS Safety Report 14821869 (Version 1)
Quarter: 2018Q2

REPORT INFORMATION
  Report Type: Report from Study
  Country: US (occurrence: US)
  Receive Date: 20180427
  Receipt Date: 20180427
  Transmission Date: 20180711
  Serious: No
  Sender: FDA-Public Use
  Company Number: US-AMGEN-USASL2018038355

PATIENT
  Age: 51 Year
  Sex: Male

DRUGS (3)
  1. REPATHA [Suspect]
     Active Substance: EVOLOCUMAB
     Indication: HYPERLIPIDAEMIA
  2. REPATHA [Suspect]
     Active Substance: EVOLOCUMAB
     Indication: HYPERCHOLESTEROLAEMIA
     Dosage: 420 MG, QMO
     Route: 065
     Dates: start: 20180320
  3. PLAVIX [Concomitant]
     Active Substance: CLOPIDOGREL BISULFATE
     Dosage: UNK

REACTIONS (15)
  - Sluggishness [Unknown]
  - Feeling abnormal [Unknown]
  - Limb discomfort [Unknown]
  - Back pain [Unknown]
  - Discomfort [Unknown]
  - Nervousness [Unknown]
  - Asthenia [Unknown]
  - Pain in extremity [Unknown]
  - Insomnia [Unknown]
  - Injection site pain [Unknown]
  - Restlessness [Unknown]
  - Lethargy [Unknown]
  - Rhinorrhoea [Unknown]
  - Fatigue [Unknown]
  - Injection site swelling [Unknown]

NARRATIVE: CASE EVENT DATE: 2018
